FAERS Safety Report 9886733 (Version 1)
Quarter: 2014Q1

REPORT INFORMATION
  Report Type: Spontaneous
  Country: BR (occurrence: BR)
  Receive Date: 20140210
  Receipt Date: 20140210
  Transmission Date: 20141002
  Serious: Yes (Other)
  Sender: FDA-Public Use
  Company Number: PHHY2014BR012817

PATIENT
  Sex: Male

DRUGS (2)
  1. QUETIAPINE [Suspect]
     Indication: HALLUCINATION
  2. MEMANTINE [Suspect]
     Indication: DEMENTIA ALZHEIMER^S TYPE

REACTIONS (2)
  - Hallucination [Unknown]
  - Incorrect dose administered [Unknown]
